FAERS Safety Report 6989296-X (Version None)
Quarter: 2010Q3

REPORT INFORMATION
  Report Type: 
  Country: None (occurrence: None)
  Receive Date: 20100916
  Receipt Date: 20100211
  Transmission Date: 20110219
  Serious: Yes (Other)
  Sender: FDA-Public Use
  Company Number: ES-PFIZER INC-2009210427

PATIENT
  Age: 34 Year
  Sex: Male

DRUGS (3)
  1. LYRICA [Suspect]
     Indication: INSOMNIA
     Dosage: 50 MG, 1X/DAY
     Dates: start: 20090112, end: 20090114
  2. LYRICA [Suspect]
     Dosage: 75 MG, 1X/DAY
     Dates: start: 20090115, end: 20090118
  3. LYRICA [Suspect]
     Dosage: 150 MG, 2X/DAY
     Route: 048
     Dates: start: 20090201, end: 20090331

REACTIONS (1)
  - HEPATIC STEATOSIS [None]
